FAERS Safety Report 8385195-X (Version None)
Quarter: 2012Q2

REPORT INFORMATION
  Report Type: 
  Country: None (occurrence: None)
  Receive Date: 20120525
  Receipt Date: 20120514
  Transmission Date: 20120825
  Serious: Yes (Hospitalization)
  Sender: FDA-Public Use
  Company Number: US-BIOGENIDEC-2012BI009520

PATIENT
  Age: 28 Year
  Sex: Male

DRUGS (1)
  1. TYSABRI [Suspect]
     Indication: CROHN'S DISEASE
     Route: 042
     Dates: start: 20120222

REACTIONS (7)
  - CROHN'S DISEASE [None]
  - ARTHRALGIA [None]
  - INFECTION [None]
  - ABDOMINAL ABSCESS [None]
  - ABSCESS INTESTINAL [None]
  - FISTULA [None]
  - ILEAL FISTULA [None]
